FAERS Safety Report 5499228-1 (Version None)
Quarter: 2007Q4

REPORT INFORMATION
  Report Type: 
  Country: None (occurrence: None)
  Receive Date: 20071026
  Receipt Date: 20071019
  Transmission Date: 20080405
  Serious: Yes (Death, Hospitalization)
  Sender: FDA-Public Use
  Company Number: DE-GENENTECH-241368

PATIENT
  Sex: Female
  Weight: 58 kg

DRUGS (27)
  1. RITUXIMAB [Suspect]
     Indication: NON-HODGKIN'S LYMPHOMA
     Dosage: 640 MG, UNK
     Dates: start: 19990617, end: 19990825
  2. RITUXIMAB [Suspect]
     Dosage: 690 MG, UNK
     Dates: start: 19990906, end: 19990927
  3. RITUXIMAB [Suspect]
     Dosage: 375 MG/M2, 3/WEEK
     Dates: start: 20030805
  4. FLUDARABINE [Suspect]
     Indication: NON-HODGKIN'S LYMPHOMA
     Dates: start: 20010926, end: 20020215
  5. CYCLOPHOSPHAMIDE [Concomitant]
     Indication: NON-HODGKIN'S LYMPHOMA
     Dates: start: 20010926, end: 20020215
  6. BENDAMUSTINE [Concomitant]
     Indication: DRUG USE FOR UNKNOWN INDICATION
     Dates: start: 20030415, end: 20030419
  7. MITOXANTRONE [Concomitant]
     Indication: NON-HODGKIN'S LYMPHOMA
     Dates: start: 19990617, end: 19991227
  8. CHLORAMBUCIL [Concomitant]
     Indication: NON-HODGKIN'S LYMPHOMA
     Dates: start: 19990617, end: 19991227
  9. PREDNISOLONE [Concomitant]
     Indication: NON-HODGKIN'S LYMPHOMA
     Dates: start: 19990617, end: 19991227
  10. CYTARABINE [Concomitant]
     Indication: NON-HODGKIN'S LYMPHOMA
  11. DOXORUBICIN HCL [Concomitant]
     Indication: NON-HODGKIN'S LYMPHOMA
  12. VESDIL [Concomitant]
     Indication: HYPERTENSION
     Dosage: 2.5 MG, UNK
  13. GINKOBIL [Concomitant]
     Indication: EYE DISORDER
     Dosage: 100 MG, UNK
  14. ALLOPURINOL [Concomitant]
     Indication: GOUT
     Dosage: 300 MG, UNK
  15. ASPIRIN [Concomitant]
     Indication: CORONARY ARTERY DISEASE
  16. HERBAL [Concomitant]
     Indication: NIGHT SWEATS
     Dosage: 160 MG, UNK
  17. CALCIUM [Concomitant]
     Indication: PROPHYLAXIS
     Dosage: 500 MG, UNK
  18. MAGNESIUM DIASPORAL [Concomitant]
     Indication: MUSCLE SPASMS
     Dosage: 150 MG, UNK
  19. ACETYLSALICYLIC ACID SRT [Concomitant]
     Indication: DRUG USE FOR UNKNOWN INDICATION
     Dates: start: 19990811, end: 19990811
  20. METOCLOPRAMID-HCL [Concomitant]
     Indication: NAUSEA
     Dates: start: 19991006, end: 19991229
  21. MOXIFLOXACIN HCL [Concomitant]
     Indication: DRUG USE FOR UNKNOWN INDICATION
     Dates: start: 19991025, end: 19991029
  22. SALICYLIC ACID OIL [Concomitant]
     Indication: DRUG USE FOR UNKNOWN INDICATION
     Dates: start: 19991101
  23. BETAMETHASONE DIPROPIONATE [Concomitant]
     Indication: DRUG USE FOR UNKNOWN INDICATION
     Dates: start: 19991101, end: 19991201
  24. DIMENHYDRINATE [Concomitant]
     Indication: NAUSEA
  25. CLOTRIMAZOLE [Concomitant]
     Indication: DRUG USE FOR UNKNOWN INDICATION
     Dates: start: 20000112
  26. NYSTATIN [Concomitant]
     Indication: DRUG USE FOR UNKNOWN INDICATION
     Dates: start: 20000112
  27. INTERFERON ALFA [Concomitant]
     Indication: DRUG USE FOR UNKNOWN INDICATION
     Dates: start: 20000118, end: 20010509

REACTIONS (4)
  - ANAEMIA [None]
  - LEUKOPENIA [None]
  - LYMPHOPENIA [None]
  - PROGRESSIVE MULTIFOCAL LEUKOENCEPHALOPATHY [None]
